FAERS Safety Report 11638091 (Version 2)
Quarter: 2015Q4

REPORT INFORMATION
  Report Type: Spontaneous
  Country: US (occurrence: US)
  Receive Date: 20151016
  Receipt Date: 20151130
  Transmission Date: 20160304
  Serious: Yes (Hospitalization, Other)
  Sender: FDA-Public Use
  Company Number: US-BAYER-2015-441305

PATIENT
  Age: 70 Year
  Sex: Male
  Weight: 68 kg

DRUGS (1)
  1. STIVARGA [Suspect]
     Active Substance: REGORAFENIB
     Indication: COLORECTAL CANCER METASTATIC
     Dosage: 120 MG, QD
     Route: 048
     Dates: start: 20150929, end: 20151003

REACTIONS (9)
  - Tachycardia [Recovered/Resolved]
  - Hypotension [Recovered/Resolved]
  - Melaena [Not Recovered/Not Resolved]
  - Arthralgia [None]
  - Depressed level of consciousness [Recovered/Resolved]
  - Rectal haemorrhage [Recovered/Resolved]
  - Colorectal cancer metastatic [None]
  - Pain [None]
  - Abdominal pain [None]

NARRATIVE: CASE EVENT DATE: 20150930
